FAERS Safety Report 7783601-2 (Version None)
Quarter: 2011Q3

REPORT INFORMATION
  Report Type: 
  Country: None (occurrence: None)
  Receive Date: 20110928
  Receipt Date: 20110922
  Transmission Date: 20111222
  Serious: Yes (Death)
  Sender: FDA-Public Use
  Company Number: GB-GENZYME-CLOF-1001799

PATIENT
  Sex: Male
  Weight: 14.8 kg

DRUGS (23)
  1. CLOFARABINE [Suspect]
     Indication: ACUTE LYMPHOCYTIC LEUKAEMIA
     Dosage: 44 MG/M2, QD
     Route: 042
     Dates: start: 20110810, end: 20110814
  2. ANTI-THYMOCYTE GLOBULIN NOS [Suspect]
     Indication: STEM CELL TRANSPLANT
  3. FLUDARA [Suspect]
     Indication: ACUTE LYMPHOCYTIC LEUKAEMIA
     Dosage: UNK
     Route: 065
     Dates: start: 20110906, end: 20110912
  4. ZYVOX [Concomitant]
     Indication: INFECTION
     Dosage: 330 MG, UNK
     Route: 065
     Dates: start: 20110906, end: 20110921
  5. ZYVOX [Concomitant]
     Indication: FEBRILE NEUTROPENIA
  6. ACYCLOVIR [Concomitant]
     Indication: INFECTION
     Dosage: 1500 MG, UNK
     Route: 065
     Dates: start: 20110913, end: 20110921
  7. ETOPOPHOS PRESERVATIVE FREE [Suspect]
     Indication: ACUTE LYMPHOCYTIC LEUKAEMIA
     Dosage: UNK
     Route: 065
     Dates: start: 20110810, end: 20110814
  8. TIGECYCLINE [Concomitant]
     Indication: INFECTION
     Dosage: 20 MG, UNK
     Route: 065
     Dates: start: 20110920, end: 20110921
  9. TIGECYCLINE [Concomitant]
     Indication: FEBRILE NEUTROPENIA
  10. GRANOCYTE [Concomitant]
     Indication: FEBRILE NEUTROPENIA
  11. PREDNISOLONE [Concomitant]
     Indication: PROPHYLAXIS AGAINST GRAFT VERSUS HOST DISEASE
     Dosage: 18 MG, UNK
     Route: 065
     Dates: start: 20110913, end: 20110921
  12. TREOSULFAN [Suspect]
     Indication: STEM CELL TRANSPLANT
  13. GRANOCYTE [Concomitant]
     Indication: INFECTION
     Dosage: 80 MG, UNK
     Route: 065
     Dates: start: 20110919, end: 20110921
  14. FLUDARA [Suspect]
     Indication: STEM CELL TRANSPLANT
  15. THIOTEPA [Suspect]
     Indication: STEM CELL TRANSPLANT
  16. TREOSULFAN [Suspect]
     Indication: ACUTE LYMPHOCYTIC LEUKAEMIA
     Dosage: UNK
     Route: 065
     Dates: start: 20110906, end: 20110912
  17. AMIKACIN [Concomitant]
     Indication: INFECTION
     Dosage: 200 MG, UNK
     Route: 065
     Dates: start: 20110916, end: 20110921
  18. ACYCLOVIR [Concomitant]
     Indication: FEBRILE NEUTROPENIA
  19. ANTI-THYMOCYTE GLOBULIN NOS [Suspect]
     Indication: ACUTE LYMPHOCYTIC LEUKAEMIA
     Dosage: UNK
     Route: 065
     Dates: start: 20110906, end: 20110912
  20. AMIKACIN [Concomitant]
     Indication: FEBRILE NEUTROPENIA
  21. CYCLOPHOSPHAMIDE [Suspect]
     Indication: ACUTE LYMPHOCYTIC LEUKAEMIA
     Dosage: UNK
     Route: 065
     Dates: start: 20110810, end: 20110814
  22. THIOTEPA [Suspect]
     Indication: ACUTE LYMPHOCYTIC LEUKAEMIA
     Dosage: UNK
     Route: 065
     Dates: start: 20110906, end: 20110912
  23. CYCLOSPORINE [Concomitant]
     Indication: PROPHYLAXIS AGAINST GRAFT VERSUS HOST DISEASE
     Dosage: 60 MG, UNK
     Route: 065
     Dates: start: 20110914, end: 20110921

REACTIONS (2)
  - PERITONITIS BACTERIAL [None]
  - SEPSIS [None]
